FAERS Safety Report 7331090-4 (Version None)
Quarter: 2011Q1

REPORT INFORMATION
  Report Type: 
  Country: None (occurrence: None)
  Receive Date: 20110228
  Receipt Date: 20110228
  Transmission Date: 20110831
  Serious: No
  Sender: FDA-Public Use
  Company Number: None

PATIENT
  Sex: Female
  Weight: 56.6996 kg

DRUGS (1)
  1. ABILIFY [Suspect]
     Indication: DRUG THERAPY
     Dosage: 1 ONCE A DAY    JAN -20TH OR 21ST MAYBE ONLY 12-15 DAYS
     Dates: start: 20110120

REACTIONS (1)
  - PAIN IN EXTREMITY [None]
